FAERS Safety Report 8458341-7 (Version None)
Quarter: 2012Q2

REPORT INFORMATION
  Report Type: 
  Country: None (occurrence: None)
  Receive Date: 20120615
  Receipt Date: 20120604
  Transmission Date: 20120825
  Serious: Yes (Other)
  Sender: FDA-Public Use
  Company Number: GGEL20120600736

PATIENT
  Sex: Male

DRUGS (3)
  1. GABAPENTIN [Suspect]
     Indication: NECK PAIN
     Dosage: 200 ML, TWICE A DAY, ORAL
     Route: 048
  2. METHOCARBAMOL [Concomitant]
  3. METHOCARBAMOL [Concomitant]
     Indication: NECK PAIN
     Dosage: 200 ML, TWICE A DAY, ORAL
     Route: 048

REACTIONS (3)
  - DRUG DISPENSING ERROR [None]
  - CONVULSION [None]
  - ACCIDENTAL OVERDOSE [None]
